FAERS Safety Report 16741151 (Version 1)
Quarter: 2019Q4

REPORT INFORMATION
  Report Type: Spontaneous
  Country: US (occurrence: US)
  Receive Date: 20190822
  Receipt Date: 20190822
  Transmission Date: 20200122
  Serious: Yes (Other)
  Sender: FDA-Public Use
  Company Number: None

PATIENT
  Age: 49 Year

DRUGS (1)
  1. KOI CBD [Suspect]
     Active Substance: CANNABIDIOL\HERBALS
     Indication: STRESS
     Route: 055
     Dates: start: 20190724, end: 20190810

REACTIONS (2)
  - Abdominal pain [None]
  - Hepatic enzyme increased [None]

NARRATIVE: CASE EVENT DATE: 20190816
